FAERS Safety Report 8904692 (Version 2)
Quarter: 2012Q4

REPORT INFORMATION
  Report Type: 
  Country: AU (occurrence: US)
  Receive Date: 20121112
  Receipt Date: 20121119
  Transmission Date: 20130627
  Serious: Yes (Other)
  Sender: FDA-Public Use
  Company Number: US-PFIZER INC-2012278472

PATIENT
  Age: 52 Year
  Sex: Female

DRUGS (4)
  1. FLUOROURACIL [Suspect]
     Indication: RECTAL CANCER METASTATIC
     Dosage: UNK, cyclic
  2. OXALIPLATIN [Suspect]
     Indication: RECTAL CANCER METASTATIC
     Dosage: UNK, cyclic
  3. CALCIUM FOLINATE [Suspect]
     Indication: RECTAL CANCER METASTATIC
     Dosage: UNK, cyclic
  4. BEVACIZUMAB [Suspect]
     Indication: RECTAL CANCER METASTATIC
     Dosage: UNK

REACTIONS (1)
  - Posterior reversible encephalopathy syndrome [Recovered/Resolved]
